FAERS Safety Report 8857238 (Version 7)
Quarter: 2014Q3

REPORT INFORMATION
  Report Type: Spontaneous
  Country: US (occurrence: US)
  Receive Date: 20121024
  Receipt Date: 20140822
  Transmission Date: 20150326
  Serious: Yes (Hospitalization, Other)
  Sender: FDA-Public Use
  Company Number: US-009507513-1210USA009020

PATIENT
  Sex: Female
  Weight: 74.83 kg

DRUGS (1)
  1. NUVARING [Suspect]
     Active Substance: ETHINYL ESTRADIOL\ETONOGESTREL
     Indication: CONTRACEPTION
     Dosage: UNK
     Route: 067
     Dates: start: 200709, end: 201010

REACTIONS (15)
  - Maternal exposure before pregnancy [Recovered/Resolved]
  - Palpitations [Unknown]
  - Pain in extremity [Unknown]
  - Dyspnoea [Unknown]
  - Hysterectomy [Unknown]
  - Tricuspid valve incompetence [Unknown]
  - Deep vein thrombosis [Recovered/Resolved with Sequelae]
  - Sinusitis [Unknown]
  - Pulmonary embolism [Unknown]
  - Pulmonary hypertension [Unknown]
  - Thrombosis [Unknown]
  - Thrombophlebitis [Unknown]
  - Pain in extremity [Unknown]
  - Ventricular extrasystoles [Unknown]
  - Dyspepsia [Unknown]

NARRATIVE: CASE EVENT DATE: 201010
